FAERS Safety Report 4609340-4 (Version None)
Quarter: 2005Q1

REPORT INFORMATION
  Report Type: 
  Country: None (occurrence: None)
  Receive Date: 20050314
  Receipt Date: 20050301
  Transmission Date: 20050727
  Serious: Yes (Death, Hospitalization, Other)
  Sender: FDA-Public Use
  Company Number: 2003126127

PATIENT
  Age: 52 Year
  Sex: Female

DRUGS (4)
  1. VFEND [Suspect]
     Indication: ASPERGILLOSIS
     Dates: start: 20030801
  2. CASPOFUNGIN ACETATE (CASPOFUNGIN ACETATE) [Concomitant]
  3. IMMUNOSUPPRESSIVE AGENTS (IMMUNOSUPPRESSIVE AGENTS) [Concomitant]
  4. CORTICOSTEROIDS (CORTICOSTEROIDS) [Concomitant]

REACTIONS (13)
  - BIOPSY LIVER ABNORMAL [None]
  - CEREBRAL FUNGAL INFECTION [None]
  - CONDITION AGGRAVATED [None]
  - FUNGAL INFECTION [None]
  - FUNGUS SPUTUM TEST POSITIVE [None]
  - IMMUNOSUPPRESSION [None]
  - LIVER DISORDER [None]
  - LUNG DISORDER [None]
  - NERVOUS SYSTEM DISORDER [None]
  - NEUTROPHIL COUNT DECREASED [None]
  - PULMONARY MYCOSIS [None]
  - PYREXIA [None]
  - ZYGOMYCOSIS [None]
